FAERS Safety Report 4553489-1 (Version None)
Quarter: 2005Q1

REPORT INFORMATION
  Report Type: 
  Country: None (occurrence: None)
  Receive Date: 20050113
  Receipt Date: 20050104
  Transmission Date: 20050727
  Serious: Yes (Hospitalization)
  Sender: FDA-Public Use
  Company Number: 2004-UK-01416UK

PATIENT
  Sex: Male

DRUGS (2)
  1. NEVIRAPINE (EU/1/97/055/001) (NEVIRAPINE) [Suspect]
     Indication: HIV INFECTION
     Dosage: (200 MG)
  2. OXYTETRACYCLINE [Suspect]
     Indication: LOWER RESPIRATORY TRACT INFECTION

REACTIONS (2)
  - BRONCHOSPASM [None]
  - RASH [None]
